FAERS Safety Report 6540162-3 (Version None)
Quarter: 2010Q1

REPORT INFORMATION
  Report Type: 
  Country: None (occurrence: None)
  Receive Date: 20100112
  Receipt Date: 20100104
  Transmission Date: 20100710
  Serious: No
  Sender: FDA-Public Use
  Company Number: 20107923

PATIENT
  Sex: Male
  Weight: 60.4 kg

DRUGS (11)
  1. BACLOFEN [Suspect]
     Indication: MUSCLE SPASTICITY
     Dosage: 600 MCG, DAILY, INTRATHECAL  - SEE B
     Route: 037
  2. PREDNISOLONE [Concomitant]
  3. GABALON [Concomitant]
  4. DANTRIUM [Concomitant]
  5. AROFUTO [Concomitant]
  6. MYONAL [Concomitant]
  7. TIZANIDINE HCL [Concomitant]
  8. TEGRETOL [Concomitant]
  9. ALFARAL [Concomitant]
  10. AMOBAN [Concomitant]
  11. GASTER-D [Concomitant]

REACTIONS (3)
  - CONDITION AGGRAVATED [None]
  - DRUG RESISTANCE [None]
  - MUSCLE SPASTICITY [None]
